FAERS Safety Report 6431803-X (Version None)
Quarter: 2009Q4

REPORT INFORMATION
  Report Type: 
  Country: None (occurrence: None)
  Receive Date: 20091104
  Receipt Date: 20091020
  Transmission Date: 20100525
  Serious: Yes (Hospitalization)
  Sender: FDA-Public Use
  Company Number: 1000009758

PATIENT
  Sex: Female
  Weight: 2.22 kg

DRUGS (5)
  1. CITALOPRAM HYDROBROMIDE [Suspect]
     Dosage: 20 MG (20 MG, 1 IN 1 D), TRANSPLACENTAL
     Route: 064
     Dates: start: 20080801, end: 20090420
  2. RIVOTRIL (2.5 MILLIGRAM/MILLILITERS, SOLUTION) [Suspect]
     Dosage: 15 GTT (15 GTT, 1 IN 1 D), TRANSPLACENTAL
     Route: 064
     Dates: start: 20080801
  3. ADALAT [Concomitant]
  4. ATOSIBAN [Concomitant]
  5. CORTICOSTEROIDS [Concomitant]

REACTIONS (6)
  - BREECH PRESENTATION [None]
  - CAESAREAN SECTION [None]
  - FEEDING DISORDER NEONATAL [None]
  - MATERNAL DRUGS AFFECTING FOETUS [None]
  - PREMATURE BABY [None]
  - SMALL FOR DATES BABY [None]
